FAERS Safety Report 14303146 (Version 3)
Quarter: 2018Q1

REPORT INFORMATION
  Report Type: Spontaneous
  Country: GB (occurrence: GB)
  Receive Date: 20171219
  Receipt Date: 20180117
  Transmission Date: 20180509
  Serious: Yes (Death, Hospitalization, Other)
  Sender: FDA-Public Use
  Company Number: GB-GILEAD-2017-0310213

PATIENT
  Age: 56 Year
  Weight: 77 kg

DRUGS (9)
  1. DESLORATADINE. [Concomitant]
     Active Substance: DESLORATADINE
  2. ALLOPURINOL. [Concomitant]
     Active Substance: ALLOPURINOL
  3. SALBUTAMOL [Concomitant]
     Active Substance: ALBUTEROL
  4. HARVONI [Suspect]
     Active Substance: LEDIPASVIR\SOFOSBUVIR
     Indication: HEPATITIS C
     Dosage: 1 DF, UNK
     Route: 048
     Dates: start: 20160720, end: 20160926
  5. ZOPICLONE [Concomitant]
     Active Substance: ZOPICLONE
     Dosage: UNK
  6. ESOMEPRAZOLE [Concomitant]
     Active Substance: ESOMEPRAZOLE
  7. AMITRIPTYLINE [Concomitant]
     Active Substance: AMITRIPTYLINE
     Dosage: UNK
     Dates: start: 20160720, end: 20160926
  8. CODEINE [Concomitant]
     Active Substance: CODEINE
  9. TIOTROPIUM [Concomitant]
     Active Substance: TIOTROPIUM

REACTIONS (1)
  - Lung cancer metastatic [Fatal]

NARRATIVE: CASE EVENT DATE: 20170519
